FAERS Safety Report 5460280-0 (Version None)
Quarter: 2007Q3

REPORT INFORMATION
  Report Type: 
  Country: None (occurrence: None)
  Receive Date: 20070919
  Receipt Date: 20070702
  Transmission Date: 20080115
  Serious: Yes (Other)
  Sender: FDA-Public Use
  Company Number: US-ASTRAZENECA-2007UW14522

PATIENT
  Age: 58 Year
  Sex: Female

DRUGS (5)
  1. SEROQUEL [Suspect]
     Route: 048
     Dates: start: 20060414, end: 20070227
  2. LITHIUM [Concomitant]
     Route: 048
     Dates: start: 20070214, end: 20070502
  3. RISPERDAL [Concomitant]
  4. AMBIEN CR [Concomitant]
     Route: 048
     Dates: start: 20051213
  5. WELLBUTRIN SR [Concomitant]
     Route: 048
     Dates: start: 20061112, end: 20070314

REACTIONS (1)
  - TARDIVE DYSKINESIA [None]
